FAERS Safety Report 4968343-0 (Version None)
Quarter: 2006Q2

REPORT INFORMATION
  Report Type: 
  Country: None (occurrence: None)
  Receive Date: 20060410
  Receipt Date: 20060324
  Transmission Date: 20061013
  Serious: Yes (Other)
  Sender: FDA-Public Use
  Company Number: CN-BRISTOL-MYERS SQUIBB COMPANY-13341573

PATIENT
  Age: 42 Year
  Sex: Female

DRUGS (1)
  1. MEVALOTIN [Suspect]
     Indication: HYPERLIPIDAEMIA
     Route: 048
     Dates: start: 20060312, end: 20060320

REACTIONS (4)
  - ABDOMINAL DISTENSION [None]
  - ARTHRALGIA [None]
  - CONSTIPATION [None]
  - DRY MOUTH [None]
